FAERS Safety Report 8809293 (Version 1)
Quarter: 2012Q4

REPORT INFORMATION
  Report Type: 
  Country: US (occurrence: US)
  Receive Date: 20120926
  Receipt Date: 20120926
  Transmission Date: 20130627
  Serious: Yes (Hospitalization)
  Sender: FDA-Public Use
  Company Number: US-BAYER-2012-100076

PATIENT
  Age: 28 Year
  Sex: Female

DRUGS (23)
  1. YAZ [Suspect]
  2. LAMICTAL [Concomitant]
     Dosage: UNK
     Dates: start: 20080408
  3. LAMICTAL [Concomitant]
     Dosage: UNK
     Dates: start: 20080616
  4. ABILIFY [Concomitant]
     Dosage: UNK
     Dates: start: 20080408
  5. ABILIFY [Concomitant]
     Dosage: UNK
     Dates: start: 20080616
  6. ADDERALL [Concomitant]
     Dosage: UNK
     Dates: start: 20080408
  7. ADDERALL [Concomitant]
     Dosage: UNK
     Dates: start: 20080616
  8. KLONOPIN [Concomitant]
     Dosage: UNK
     Dates: start: 20080616
  9. SEROQUEL [Concomitant]
     Dosage: UNK
     Dates: start: 20080408
  10. SEROQUEL [Concomitant]
     Dosage: UNK
     Dates: start: 20080616
  11. TRAZODONE [Concomitant]
     Dosage: UNK
     Dates: start: 20080408
  12. TRAZODONE [Concomitant]
     Dosage: UNK
     Dates: start: 20080616
  13. FERROUS SULFATE [Concomitant]
     Dosage: UNK
     Dates: start: 20080408
  14. PERCOCET [Concomitant]
  15. PRENATAL [Concomitant]
     Dosage: 1 oral tablet 60-1 mg
  16. REGLAN [Concomitant]
  17. MACROBID [Concomitant]
  18. CYCLOBENZAPRINE [Concomitant]
  19. LIDOCAINE [Concomitant]
  20. HYDROCODONE W/ACETAMINOPHEN [Concomitant]
  21. ONDANSETRON HYDROCHLORIDE [Concomitant]
  22. IBUPROFEN [Concomitant]
  23. ORPHENADRINE [Concomitant]

REACTIONS (1)
  - Pulmonary embolism [None]
